FAERS Safety Report 4870555-1 (Version None)
Quarter: 2005Q4

REPORT INFORMATION
  Report Type: 
  Country: None (occurrence: None)
  Receive Date: 20051228
  Receipt Date: 20051213
  Transmission Date: 20060501
  Serious: Yes (Other)
  Sender: FDA-Public Use
  Company Number: 2005-BP-21450RO

PATIENT
  Age: 34 Year
  Sex: Male

DRUGS (1)
  1. ANAGRELIDE HCL [Suspect]
     Indication: ESSENTIAL THROMBOCYTHAEMIA
     Dosage: SEE IMAGE
     Route: 048

REACTIONS (22)
  - ABDOMINAL DISTENSION [None]
  - ASCITES [None]
  - ATRIOVENTRICULAR BLOCK FIRST DEGREE [None]
  - BRAIN NATRIURETIC PEPTIDE INCREASED [None]
  - CARDIAC FAILURE HIGH OUTPUT [None]
  - DILATATION ATRIAL [None]
  - DILATATION VENTRICULAR [None]
  - DISEASE RECURRENCE [None]
  - DYSPNOEA EXERTIONAL [None]
  - EMBOLISM [None]
  - GASTROINTESTINAL HAEMORRHAGE [None]
  - HAEMATOCRIT DECREASED [None]
  - HAEMOGLOBIN DECREASED [None]
  - HEPATOMEGALY [None]
  - MUSCLE ATROPHY [None]
  - OEDEMA PERIPHERAL [None]
  - PALPITATIONS [None]
  - PULMONARY HYPERTENSION [None]
  - TRICUSPID VALVE INCOMPETENCE [None]
  - VENOUS PRESSURE JUGULAR INCREASED [None]
  - WEIGHT DECREASED [None]
  - WHITE BLOOD CELL COUNT INCREASED [None]
